FAERS Safety Report 4802975-5 (Version None)
Quarter: 2005Q4

REPORT INFORMATION
  Report Type: 
  Country: None (occurrence: None)
  Receive Date: 20051019
  Receipt Date: 20051010
  Transmission Date: 20060501
  Serious: Yes (Other)
  Sender: FDA-Public Use
  Company Number: PHFR2005GB03339

PATIENT
  Age: 49 Year
  Sex: Female

DRUGS (2)
  1. VALSARTAN [Suspect]
     Indication: HYPOTENSION
     Dosage: 80MG DAILY
     Route: 048
     Dates: start: 20040723, end: 20050909
  2. FERROUS SULFATE TAB [Concomitant]
     Indication: HAEMOGLOBIN DECREASED
     Dosage: 200MG DAILY
     Route: 048
     Dates: start: 20050701

REACTIONS (2)
  - JOINT SWELLING [None]
  - PAIN IN EXTREMITY [None]
